FAERS Safety Report 11925673 (Version 2)
Quarter: 2016Q1

REPORT INFORMATION
  Report Type: Report from Study
  Country: PK (occurrence: PK)
  Receive Date: 20160118
  Receipt Date: 20160307
  Transmission Date: 20160526
  Serious: Yes (Death, Other)
  Sender: FDA-Public Use
  Company Number: PHHY2016PK003930

PATIENT
  Age: 22 Year
  Sex: Male

DRUGS (1)
  1. TASIGNA [Suspect]
     Active Substance: NILOTINIB
     Indication: CHRONIC MYELOID LEUKAEMIA
     Dosage: 400 MG, QD
     Route: 048
     Dates: start: 20111209, end: 20151123

REACTIONS (3)
  - Chronic myeloid leukaemia transformation [Unknown]
  - Acute myeloid leukaemia [Unknown]
  - Death [Fatal]

NARRATIVE: CASE EVENT DATE: 20160111
